FAERS Safety Report 13777867 (Version 4)
Quarter: 2019Q3

REPORT INFORMATION
  Report Type: Spontaneous
  Country: CA (occurrence: CA)
  Receive Date: 20170721
  Receipt Date: 20190906
  Transmission Date: 20191004
  Serious: Yes (Other)
  Sender: FDA-Public Use
  Company Number: CA-APOTEX-2016AP015331

PATIENT
  Age: 63 Year
  Sex: Male

DRUGS (8)
  1. ROSUVASTATIN. [Suspect]
     Active Substance: ROSUVASTATIN
     Indication: LIPOMATOSIS
     Dosage: 5 MG, DAILY
     Route: 065
  2. EZETIMIBE. [Concomitant]
     Active Substance: EZETIMIBE
     Indication: ARTERIOSCLEROSIS
     Dosage: 10 MG, QD
     Route: 065
  3. COENZYME Q10 [Concomitant]
     Active Substance: UBIDECARENONE
     Indication: MYALGIA
     Dosage: 400 MG, QD
     Route: 065
  4. ROSUVASTATIN. [Suspect]
     Active Substance: ROSUVASTATIN
     Indication: ARTERIOSCLEROSIS
     Dosage: 5 MG, ALTERNATE DAY
     Route: 065
  5. ROSUVASTATIN. [Suspect]
     Active Substance: ROSUVASTATIN
     Indication: PRODUCT USED FOR UNKNOWN INDICATION
     Dosage: 2.5 MG,
     Route: 065
  6. EZETIMIBE. [Concomitant]
     Active Substance: EZETIMIBE
     Indication: PRODUCT USED FOR UNKNOWN INDICATION
     Dosage: UNK
     Route: 065
  7. COENZYME Q10 [Concomitant]
     Active Substance: UBIDECARENONE
     Indication: PROPHYLAXIS
     Dosage: 200 MG, QD
     Route: 065
  8. COENZYME Q10 [Concomitant]
     Active Substance: UBIDECARENONE
     Dosage: 150 MG, QD
     Route: 065

REACTIONS (4)
  - Myopathy [Not Recovered/Not Resolved]
  - Muscle spasms [Unknown]
  - Muscular weakness [Unknown]
  - Blood creatine phosphokinase increased [Unknown]
